FAERS Safety Report 19562662 (Version 1)
Quarter: 2021Q3

REPORT INFORMATION
  Report Type: Report from Study
  Country: US (occurrence: US)
  Receive Date: 20210716
  Receipt Date: 20210716
  Transmission Date: 20211014
  Serious: Yes (Other)
  Sender: FDA-Public Use
  Company Number: US-HRARD-2021000075

PATIENT
  Age: 47 Year
  Sex: Male

DRUGS (3)
  1. LYSODREN [Suspect]
     Active Substance: MITOTANE
     Dosage: 1000 MG BID
     Route: 048
     Dates: start: 2021
  2. LYSODREN [Suspect]
     Active Substance: MITOTANE
     Dosage: 1000 MG TWICE DAILY, ONGOING
     Route: 048
     Dates: start: 20201203
  3. LYSODREN [Suspect]
     Active Substance: MITOTANE
     Dosage: 2000 MG BID
     Route: 048
     Dates: start: 20201204

REACTIONS (9)
  - Dizziness [Recovering/Resolving]
  - Nausea [Recovering/Resolving]
  - Product dose omission issue [Recovered/Resolved]
  - Somnolence [Recovering/Resolving]
  - Dehydration [Recovering/Resolving]
  - Fatigue [Recovering/Resolving]
  - Asthenia [Recovering/Resolving]
  - Vomiting [Recovering/Resolving]
  - Product dose omission issue [Recovered/Resolved]

NARRATIVE: CASE EVENT DATE: 20201213
